FAERS Safety Report 7135814-0 (Version None)
Quarter: 2010Q4

REPORT INFORMATION
  Report Type: 
  Country: None (occurrence: None)
  Receive Date: 20101203
  Receipt Date: 20101119
  Transmission Date: 20110411
  Serious: Yes (Hospitalization)
  Sender: FDA-Public Use
  Company Number: US-ELI_LILLY_AND_COMPANY-US201007002062

PATIENT
  Sex: Female

DRUGS (17)
  1. FORTEO [Suspect]
     Indication: OSTEOPOROSIS
     Dosage: 20 UG, DAILY (1/D)
  2. FORTEO [Suspect]
     Dosage: 20 UG, DAILY (1/D)
  3. DUONEB [Concomitant]
  4. SPIRIVA [Concomitant]
  5. PROAIR HFA [Concomitant]
  6. SINGULAIR [Concomitant]
  7. OMEPRAZOLE [Concomitant]
  8. MEGACE [Concomitant]
  9. DILTIAZEM [Concomitant]
  10. CALCIUM +VIT D [Concomitant]
  11. CORTISONE [Concomitant]
  12. HYDROCODONE BITARTRATE [Concomitant]
  13. THEOPHYLLINE [Concomitant]
  14. METOLAZONE [Concomitant]
  15. MIRALAX [Concomitant]
  16. CATAPRES /00171102/ [Concomitant]
  17. BACTRIM [Concomitant]

REACTIONS (4)
  - CHRONIC OBSTRUCTIVE PULMONARY DISEASE [None]
  - DYSPNOEA [None]
  - GAIT DISTURBANCE [None]
  - MALAISE [None]
